FAERS Safety Report 6411618-9 (Version None)
Quarter: 2009Q4

REPORT INFORMATION
  Report Type: 
  Country: None (occurrence: None)
  Receive Date: 20091020
  Receipt Date: 20091012
  Transmission Date: 20100525
  Serious: Yes (Death, Other)
  Sender: FDA-Public Use
  Company Number: 231814J09USA

PATIENT
  Age: 56 Year
  Sex: Female

DRUGS (1)
  1. REBIF [Suspect]
     Indication: MULTIPLE SCLEROSIS
     Dates: start: 20031103, end: 20081011

REACTIONS (4)
  - ASPIRATION [None]
  - BEDRIDDEN [None]
  - DISEASE COMPLICATION [None]
  - MULTIPLE SCLEROSIS [None]
